FAERS Safety Report 24616064 (Version 1)
Quarter: 2024Q4

REPORT INFORMATION
  Report Type: Spontaneous
  Country: US (occurrence: US)
  Receive Date: 20241113
  Receipt Date: 20241113
  Transmission Date: 20250115
  Serious: Yes (Hospitalization, Other)
  Sender: DR REDDYS
  Company Number: US-DRL-USA-SPO/USA/24/0016721

PATIENT
  Age: 59 Year
  Sex: Female

DRUGS (4)
  1. SIROLIMUS [Suspect]
     Active Substance: SIROLIMUS
     Indication: Product used for unknown indication
     Route: 065
  2. BELUMOSUDIL MESYLATE [Suspect]
     Active Substance: BELUMOSUDIL MESYLATE
     Indication: Graft versus host disease
     Route: 065
  3. BELUMOSUDIL MESYLATE [Suspect]
     Active Substance: BELUMOSUDIL MESYLATE
     Route: 065
  4. QUERCETIN [Suspect]
     Active Substance: QUERCETIN
     Indication: Product used for unknown indication
     Route: 065

REACTIONS (20)
  - Skin laceration [Unknown]
  - Squamous cell carcinoma [Unknown]
  - Staphylococcal infection [Unknown]
  - Palpitations [Unknown]
  - Hyperhidrosis [Unknown]
  - Blood blister [Unknown]
  - Oral mucosal blistering [Unknown]
  - Lip blister [Unknown]
  - Limb discomfort [Unknown]
  - Lung opacity [Not Recovered/Not Resolved]
  - Muscle spasms [Unknown]
  - Infection [Unknown]
  - Spinal pain [Unknown]
  - Vision blurred [Unknown]
  - Discomfort [Unknown]
  - Muscle twitching [Unknown]
  - Illness [Unknown]
  - Neck pain [Unknown]
  - Inappropriate schedule of product administration [Unknown]
  - Product dose omission issue [Unknown]

NARRATIVE: CASE EVENT DATE: 20230101
